FAERS Safety Report 4385627-8 (Version None)
Quarter: 2004Q2

REPORT INFORMATION
  Report Type: 
  Country: None (occurrence: None)
  Receive Date: 20040625
  Receipt Date: 20040625
  Transmission Date: 20050107
  Serious: No
  Sender: FDA-Public Use
  Company Number: None

PATIENT
  Age: 76 Year
  Sex: Female

DRUGS (2)
  1. MIDAZOLAM HCL [Suspect]
     Indication: CARDIOVERSION
     Dosage: 6 MG IV
     Route: 042
     Dates: start: 20040129
  2. MIDAZOLAM HCL [Suspect]
     Indication: SEDATION
     Dosage: 6 MG IV
     Route: 042
     Dates: start: 20040129

REACTIONS (3)
  - OXYGEN SATURATION DECREASED [None]
  - RESPIRATORY RATE DECREASED [None]
  - SEDATION [None]
